FAERS Safety Report 6982516-7 (Version None)
Quarter: 2010Q3

REPORT INFORMATION
  Report Type: 
  Country: None (occurrence: None)
  Receive Date: 20100914
  Receipt Date: 20100126
  Transmission Date: 20110219
  Serious: Yes (Other)
  Sender: FDA-Public Use
  Company Number: US-PFIZER INC-2010011723

PATIENT
  Sex: Female
  Weight: 61.224 kg

DRUGS (5)
  1. LYRICA [Suspect]
     Indication: INTERVERTEBRAL DISC PROTRUSION
     Dosage: 150 MG, 2X/DAY
     Route: 048
     Dates: start: 20091101
  2. LYRICA [Suspect]
     Indication: NEURALGIA
  3. DEXLANSOPRAZOLE [Concomitant]
     Dosage: UNK
  4. ZOLOFT [Concomitant]
     Dosage: 50 MG, UNK
  5. BENICAR HCT [Concomitant]
     Dosage: UNK

REACTIONS (6)
  - FALL [None]
  - FEELING ABNORMAL [None]
  - FRACTURE [None]
  - INSOMNIA [None]
  - MEMORY IMPAIRMENT [None]
  - WEIGHT INCREASED [None]
